FAERS Safety Report 10098137 (Version 1)
Quarter: 2014Q2

REPORT INFORMATION
  Report Type: Spontaneous
  Country: GB (occurrence: None)
  Receive Date: 20140421
  Receipt Date: 20140421
  Transmission Date: 20141212
  Serious: Yes (Other)
  Sender: FDA-Public Use
  Company Number: AUR-APL-2014-04517

PATIENT
  Age: 67 Year
  Sex: Male

DRUGS (4)
  1. SIMVASTATIN [Suspect]
     Indication: PROPHYLAXIS
     Route: 048
     Dates: start: 20131227, end: 20140225
  2. CANDESARTAN (CANDESARTAN) [Concomitant]
  3. IBUPROFEN (IBUPROFEN) [Concomitant]
  4. OMEPRAZOLE (OMEPRAZOLE) [Concomitant]

REACTIONS (1)
  - Parotid gland enlargement [None]
